FAERS Safety Report 5563603-7 (Version None)
Quarter: 2007Q4

REPORT INFORMATION
  Report Type: 
  Country: None (occurrence: None)
  Receive Date: 20071217
  Receipt Date: 20070711
  Transmission Date: 20080405
  Serious: Yes (Hospitalization)
  Sender: FDA-Public Use
  Company Number: US-ASTRAZENECA-2007UW16410

PATIENT
  Age: 54 Year
  Sex: Female

DRUGS (8)
  1. CRESTOR [Suspect]
     Route: 048
     Dates: start: 20070601, end: 20070101
  2. LOPID [Concomitant]
  3. ZETIA [Concomitant]
  4. ACE INHIBITOR [Concomitant]
  5. BETA BLOCKER [Concomitant]
  6. PLAVIX [Concomitant]
  7. LOW DOSE ASA [Concomitant]
  8. OMEGA 3 [Concomitant]

REACTIONS (2)
  - BLOOD CREATINE PHOSPHOKINASE INCREASED [None]
  - PAIN IN EXTREMITY [None]
